FAERS Safety Report 8674177 (Version 4)
Quarter: 2013Q1

REPORT INFORMATION
  Report Type: Report from Study
  Country: PT (occurrence: PT)
  Receive Date: 20120719
  Receipt Date: 20130116
  Transmission Date: 20140127
  Serious: Yes (Congenital Anomaly)
  Sender: FDA-Public Use
  Company Number: PT-B.I. PHARMACEUTICALS,INC./RIDGEFIELD-2012-BP-15325BP

PATIENT
  Sex: 0

DRUGS (4)
  1. VIRAMUNE [Suspect]
     Indication: MATERNAL EXPOSURE DURING PREGNANCY
     Dosage: 400 MG
     Route: 064
  2. TRUVADA [Concomitant]
     Indication: MATERNAL EXPOSURE DURING PREGNANCY
     Route: 064
     Dates: end: 20120113
  3. TRUVADA [Concomitant]
     Route: 064
     Dates: start: 20120316
  4. COMBIVIR [Concomitant]
     Indication: MATERNAL EXPOSURE DURING PREGNANCY
     Route: 064
     Dates: start: 20120113, end: 20120316

REACTIONS (1)
  - Polyhydramnios [Unknown]
